FAERS Safety Report 9550012 (Version 1)
Quarter: 2013Q3

REPORT INFORMATION
  Report Type: Spontaneous
  Country: BR (occurrence: BR)
  Receive Date: 20130924
  Receipt Date: 20130924
  Transmission Date: 20140515
  Serious: Yes (Life-Threatening, Hospitalization)
  Sender: FDA-Public Use
  Company Number: BR-GLAXOSMITHKLINE-A1042664A

PATIENT
  Age: 69 Year
  Sex: Male
  Weight: 93 kg

DRUGS (12)
  1. SERETIDE [Suspect]
     Indication: ASTHMA
     Route: 055
     Dates: start: 1993
  2. ACETYLSALICYLIC ACID [Concomitant]
     Dosage: 1TAB PER DAY
     Route: 048
     Dates: start: 2003
  3. CLOPIDOGREL [Concomitant]
     Dosage: 1TAB PER DAY
     Route: 048
     Dates: start: 20130809
  4. SIMVASTATIN [Concomitant]
     Dosage: 1TAB AT NIGHT
     Route: 048
     Dates: start: 20130809
  5. PROCORALAN [Concomitant]
     Dosage: 1TAB TWICE PER DAY
     Route: 048
     Dates: start: 20130809
  6. DIOVAN HCT [Concomitant]
     Dosage: 1TAB IN THE MORNING
     Route: 048
     Dates: start: 20130809
  7. ESCITALOPRAM OXALATE [Concomitant]
     Dosage: 1TAB PER DAY
     Route: 048
     Dates: start: 20130809
  8. BAMIFIX [Concomitant]
     Dosage: 1TAB TWICE PER DAY
     Route: 048
     Dates: start: 20130809
  9. CARDIZEM [Concomitant]
     Dosage: 1TAB TWICE PER DAY
     Route: 048
     Dates: start: 2000
  10. TRIMETAZIDINE [Concomitant]
     Dosage: 1TAB TWICE PER DAY
     Route: 048
     Dates: start: 20130809
  11. OMEPRAZOLE [Concomitant]
     Dosage: 1TAB PER DAY
     Route: 048
     Dates: start: 2012
  12. ISOSORBIDE MONONITRATE [Concomitant]
     Dosage: 1TAB TWICE PER DAY
     Route: 048

REACTIONS (1)
  - Myocardial infarction [Recovered/Resolved]
